FAERS Safety Report 26178897 (Version 1)
Quarter: 2025Q4

REPORT INFORMATION
  Report Type: Spontaneous
  Country: JP (occurrence: JP)
  Receive Date: 20251219
  Receipt Date: 20251219
  Transmission Date: 20260117
  Serious: Yes (Hospitalization, Other)
  Sender: GILEAD
  Company Number: JP-GILEAD-2025-0741194

PATIENT
  Age: 29 Year
  Sex: Male

DRUGS (1)
  1. BIKTARVY [Suspect]
     Active Substance: BICTEGRAVIR SODIUM\EMTRICITABINE\TENOFOVIR ALAFENAMIDE FUMARATE
     Indication: HIV test positive
     Dosage: UNK
     Route: 065

REACTIONS (7)
  - Aphthous ulcer [Unknown]
  - Cytomegalovirus chorioretinitis [Unknown]
  - Atypical mycobacterial lymphadenitis [Recovering/Resolving]
  - Necrotic lymphadenopathy [Unknown]
  - Peritonitis [Unknown]
  - Immune reconstitution inflammatory syndrome [Unknown]
  - Psoas abscess [Unknown]
